FAERS Safety Report 6018749-6 (Version None)
Quarter: 2008Q4

REPORT INFORMATION
  Report Type: 
  Country: None (occurrence: None)
  Receive Date: 20081222
  Receipt Date: 20081209
  Transmission Date: 20090506
  Serious: Yes (Hospitalization, Other)
  Sender: FDA-Public Use
  Company Number: 08-001978

PATIENT
  Age: 18 Year
  Sex: Male

DRUGS (1)
  1. DORYX [Suspect]
     Indication: ACNE
     Dosage: 100 MG, QD, ORAL
     Route: 048
     Dates: start: 20080801, end: 20081202

REACTIONS (2)
  - DEPRESSION [None]
  - SUICIDE ATTEMPT [None]
